FAERS Safety Report 5898584-X (Version None)
Quarter: 2008Q3

REPORT INFORMATION
  Report Type: 
  Country: None (occurrence: None)
  Receive Date: 20080925
  Receipt Date: 20080204
  Transmission Date: 20090109
  Serious: No
  Sender: FDA-Public Use
  Company Number: A0708434A

PATIENT
  Sex: Female

DRUGS (3)
  1. BUPROPION HYDROCHLORIDE [Suspect]
     Indication: DEPRESSION
     Route: 048
  2. IMITREX [Concomitant]
     Indication: MIGRAINE
  3. ZOFRAN [Concomitant]

REACTIONS (3)
  - COLD SWEAT [None]
  - DEPRESSIVE SYMPTOM [None]
  - HEADACHE [None]
